FAERS Safety Report 5638243-1 (Version None)
Quarter: 2008Q1

REPORT INFORMATION
  Report Type: 
  Country: None (occurrence: None)
  Receive Date: 20080221
  Receipt Date: 20080213
  Transmission Date: 20080703
  Serious: Yes (Death)
  Sender: FDA-Public Use
  Company Number: TPA2008A00205

PATIENT
  Age: 26 Year
  Sex: Male

DRUGS (7)
  1. ROZEREM [Suspect]
     Indication: DRUG USE FOR UNKNOWN INDICATION
     Dosage: PER ORAL
     Route: 048
  2. ALPRAZOLAM [Suspect]
     Dosage: PER ORAL
     Route: 048
  3. LAMOTRIGINE [Suspect]
     Dosage: PER ORAL
     Route: 048
  4. ESCITALOPRAM OXALATE [Suspect]
     Dosage: PER ORAL
     Route: 048
  5. PYRAZOLOPYRIMIDINE (ALL OTHER THERAPEUTIC PRODUCTS) [Suspect]
     Dosage: PER ORAL
     Route: 048
  6. ZOLPIDEM [Suspect]
     Dosage: PER ORAL
     Route: 048
  7. IBUPROFEN [Suspect]

REACTIONS (1)
  - COMPLETED SUICIDE [None]
